FAERS Safety Report 9321393 (Version 2)
Quarter: 2013Q2

REPORT INFORMATION
  Report Type: Spontaneous
  Country: US (occurrence: US)
  Receive Date: 20130531
  Receipt Date: 20130611
  Transmission Date: 20140414
  Serious: No
  Sender: FDA-Public Use
  Company Number: US-AMGEN-USASP2013032375

PATIENT
  Age: 57 Year
  Sex: Female
  Weight: 75.28 kg

DRUGS (10)
  1. PROLIA [Suspect]
     Indication: OSTEOPOROSIS POSTMENOPAUSAL
     Dosage: 60 MG, Q6MO
     Route: 058
     Dates: start: 201110, end: 201303
  2. ATENOLOL [Concomitant]
  3. CALCIUM [Concomitant]
  4. FIORICET [Concomitant]
  5. ZOMIG [Concomitant]
  6. MUCINEX [Concomitant]
  7. CITALOPRAM [Concomitant]
  8. SIMVASTATIN [Concomitant]
  9. CETRIZINE [Concomitant]
  10. BUPROPION [Concomitant]

REACTIONS (2)
  - Pain in jaw [Not Recovered/Not Resolved]
  - Mastication disorder [Unknown]
